FAERS Safety Report 7260376-7 (Version None)
Quarter: 2011Q1

REPORT INFORMATION
  Report Type: 
  Country: None (occurrence: None)
  Receive Date: 20110130
  Receipt Date: 20101019
  Transmission Date: 20110831
  Serious: No
  Sender: FDA-Public Use
  Company Number: US-ABBOTT-10P-163-0679682-00

PATIENT
  Sex: Female
  Weight: 91.254 kg

DRUGS (28)
  1. FLEXERIL [Concomitant]
     Indication: FIBROMYALGIA
  2. IBUPROFEN [Concomitant]
     Indication: PAIN
  3. MULTI-VITAMIN [Concomitant]
     Indication: PRODUCT USED FOR UNKNOWN INDICATION
  4. OXYBUTYNIN [Concomitant]
     Indication: HYPERTONIC BLADDER
  5. ASPIRIN [Concomitant]
     Indication: PROPHYLAXIS
  6. SYMBICORT [Concomitant]
     Indication: ASTHMA
  7. HUMIRA [Suspect]
     Indication: RHEUMATOID ARTHRITIS
     Dates: start: 20100901
  8. HUMIRA [Suspect]
     Dates: start: 20080204
  9. VEGATIVE LEXATIVE [Concomitant]
     Indication: PRODUCT USED FOR UNKNOWN INDICATION
  10. MAXAIR [Concomitant]
     Indication: ASTHMA
  11. LISINOPRIL [Concomitant]
     Indication: HYPERTENSION
  12. LOVAZA [Concomitant]
     Indication: PRODUCT USED FOR UNKNOWN INDICATION
  13. SYNTHROID [Concomitant]
     Indication: HYPOTHYROIDISM
  14. PREVACID [Concomitant]
     Indication: GASTROOESOPHAGEAL REFLUX DISEASE
  15. ZOLOFT [Concomitant]
     Indication: DEPRESSION
  16. FLEXERIL [Concomitant]
     Indication: MYALGIA
  17. CRYSTALLINE VIT B12 INJ [Concomitant]
     Indication: IRRITABLE BOWEL SYNDROME
  18. CAPSICUM PATCH [Concomitant]
     Indication: PAIN
  19. CALCIUM [Concomitant]
     Indication: PRODUCT USED FOR UNKNOWN INDICATION
  20. BENADRYL [Concomitant]
     Indication: PRODUCT USED FOR UNKNOWN INDICATION
  21. PROBIOTICS [Concomitant]
     Indication: PRODUCT USED FOR UNKNOWN INDICATION
  22. MAXALT [Concomitant]
     Indication: MIGRAINE
  23. CRYSTALLINE VIT B12 INJ [Concomitant]
     Indication: VITAMIN B12 DECREASED
  24. HYDROCORTISONE [Concomitant]
     Indication: ROSACEA
  25. METFORMIN [Concomitant]
     Indication: DIABETES MELLITUS
  26. EPIPEN [Concomitant]
     Indication: HYPERSENSITIVITY
  27. METRONIDAZOLE [Concomitant]
     Indication: ROSACEA
  28. MOTION SICKNESS TABLETS [Concomitant]
     Indication: PRODUCT USED FOR UNKNOWN INDICATION

REACTIONS (3)
  - RASH ERYTHEMATOUS [None]
  - STAPHYLOCOCCAL INFECTION [None]
  - SKIN IRRITATION [None]
